FAERS Safety Report 7620839-9 (Version None)
Quarter: 2011Q3

REPORT INFORMATION
  Report Type: 
  Country: None (occurrence: None)
  Receive Date: 20110719
  Receipt Date: 20110714
  Transmission Date: 20111222
  Serious: Yes (Other)
  Sender: FDA-Public Use
  Company Number: US-PFIZER INC-2011070724

PATIENT
  Sex: Female

DRUGS (5)
  1. ACETAMINOPHEN AND HYDROCODONE BITARTRATE [Concomitant]
     Indication: ANALGESIC THERAPY
     Dosage: UNK
     Dates: start: 20060101, end: 20080101
  2. LEVAQUIN [Concomitant]
     Indication: INFECTION
     Dosage: UNK
     Dates: start: 20060101, end: 20080101
  3. MECLIZINE [Concomitant]
     Indication: NAUSEA
     Dosage: UNK
     Dates: start: 20050101, end: 20080101
  4. NAPROXEN (ALEVE) [Concomitant]
     Indication: ANALGESIC THERAPY
     Dosage: UNK
     Dates: start: 20060101, end: 20090101
  5. CHANTIX [Suspect]
     Indication: SMOKING CESSATION THERAPY
     Dosage: CONTINUING MONTHLY PACKS
     Dates: start: 20070918, end: 20071101

REACTIONS (3)
  - DEPRESSION [None]
  - SUICIDAL IDEATION [None]
  - ANXIETY [None]
